FAERS Safety Report 5388459-7 (Version None)
Quarter: 2007Q3

REPORT INFORMATION
  Report Type: 
  Country: None (occurrence: None)
  Receive Date: 20070716
  Receipt Date: 20070706
  Transmission Date: 20080115
  Serious: Yes (Other)
  Sender: FDA-Public Use
  Company Number: PT-ELI_LILLY_AND_COMPANY-PT200705004687

PATIENT
  Age: 17 Year
  Sex: Female

DRUGS (4)
  1. INSULIN [Suspect]
     Indication: DIABETES MELLITUS
     Dosage: HIGHER DOSE OF 6 U WHEN BG {300 MG/DL
     Route: 058
     Dates: start: 20060401
  2. INSULIN [Suspect]
     Dosage: 5 TIMES DAILY
     Route: 058
     Dates: start: 20070401, end: 20070402
  3. HUMULIN N [Concomitant]
     Indication: DIABETES MELLITUS
     Route: 058
  4. ACTRAPID INSULIN NOVO [Concomitant]

REACTIONS (5)
  - ABDOMINAL DISTENSION [None]
  - BLOOD GLUCOSE INCREASED [None]
  - DIZZINESS [None]
  - HEADACHE [None]
  - NAUSEA [None]
